FAERS Safety Report 8380937-1 (Version None)
Quarter: 2012Q2

REPORT INFORMATION
  Report Type: 
  Country: None (occurrence: None)
  Receive Date: 20120523
  Receipt Date: 20120516
  Transmission Date: 20120825
  Serious: Yes (Hospitalization)
  Sender: FDA-Public Use
  Company Number: PHHO2011DE021004

PATIENT
  Sex: Male
  Weight: 86.7 kg

DRUGS (26)
  1. PLACEBO [Suspect]
     Dosage: DOUBLE BLINDED
     Dates: start: 20120402
  2. BLINDED NO TREATMENT RECEIVED [Suspect]
     Dosage: DOUBLE BLINDED
     Route: 048
     Dates: start: 20120102, end: 20120316
  3. ACYCLOVIR [Concomitant]
     Indication: ANTIVIRAL PROPHYLAXIS
     Dosage: 1-1-1-0
     Dates: start: 20110919, end: 20120301
  4. EXCIPIAL [Concomitant]
     Indication: DRY SKIN
     Dosage: UNK
     Dates: start: 20120213, end: 20120316
  5. BLINDED LBH589 [Suspect]
     Dosage: DOUBLE BLINDED
     Route: 048
     Dates: start: 20120102, end: 20120316
  6. BLINDED FORTECORTIN [Suspect]
     Dosage: DOUBLE BLINDED
     Dates: start: 20120402
  7. LYRICA [Concomitant]
     Indication: POLYNEUROPATHY
     Dosage: 0-0-1
     Dates: start: 20120305, end: 20120318
  8. VELCADE [Suspect]
     Dosage: DOUBLE BLINDED
     Route: 048
     Dates: start: 20120102, end: 20120316
  9. BORTEZOMIB [Suspect]
     Indication: MULTIPLE MYELOMA
     Dosage: 1.3 MG/M2, DAILY AT 1,4,8,11 AND QD ON 29
     Route: 042
     Dates: start: 20110919, end: 20111208
  10. COMPARATOR FORTECORTIN [Suspect]
     Dosage: 20 MG, UNK
     Route: 048
     Dates: start: 20120402
  11. BLINDED LBH589 [Suspect]
     Dosage: DOUBLE BLINDED
     Dates: start: 20120402
  12. BLINDED NO TREATMENT RECEIVED [Suspect]
     Dosage: DOUBLE BLINDED
     Dates: start: 20120402
  13. DEXAMETHASONE [Suspect]
     Dosage: DOUBLE BLINDED
     Route: 048
     Dates: start: 20120102, end: 20120316
  14. CITALOPRAM [Concomitant]
     Dosage: 1-0-0
     Dates: start: 20080708, end: 20120318
  15. RAMIPRIL [Concomitant]
     Dosage: 1-0-1
     Dates: start: 20110224, end: 20120301
  16. LYRICA [Concomitant]
     Dosage: UNK
     Dates: start: 20120423
  17. BLINDED FORTECORTIN [Suspect]
     Indication: MULTIPLE MYELOMA
     Dosage: DOUBLE BLINDED
     Route: 048
     Dates: start: 20110919, end: 20111219
  18. VELCADE [Suspect]
     Indication: MULTIPLE MYELOMA
     Dosage: DOUBLE BLINDED
     Route: 048
     Dates: start: 20110919, end: 20111219
  19. PLACEBO [Suspect]
     Dosage: DOUBLE BLINDED
     Route: 048
     Dates: start: 20120102, end: 20120316
  20. BLINDED LBH589 [Suspect]
     Indication: MULTIPLE MYELOMA
     Dosage: DOUBLE BLINDED
     Route: 048
     Dates: start: 20110919, end: 20111219
  21. BLINDED NO TREATMENT RECEIVED [Suspect]
     Indication: MULTIPLE MYELOMA
     Dosage: DOUBLE BLINDED
     Route: 048
     Dates: start: 20110919, end: 20111219
  22. PLACEBO [Suspect]
     Indication: MULTIPLE MYELOMA
     Dosage: DOUBLE BLINDED
     Route: 048
     Dates: start: 20110919, end: 20111219
  23. VELCADE [Suspect]
     Dosage: DOUBLE BLINDED
     Dates: start: 20120402
  24. COMPARATOR FORTECORTIN [Suspect]
     Indication: MULTIPLE MYELOMA
     Dosage: 20 MG DAILY, AT 1+2, 4+5, 8+9, 11+12 AND QD ON 29
     Route: 048
     Dates: start: 20110919, end: 20111219
  25. COMPARATOR FORTECORTIN [Suspect]
     Dosage: 20 MG, QD AT 1+2, 4+5, 8+9, 11+12 AND QD ON 29
     Route: 048
     Dates: start: 20120102, end: 20120316
  26. ZOMETA [Suspect]
     Indication: OSTEOLYSIS
     Dosage: 4 MG, QW4
     Dates: end: 20120113

REACTIONS (2)
  - PNEUMONIA [None]
  - OSTEONECROSIS OF JAW [None]
